FAERS Safety Report 21696014 (Version 1)
Quarter: 2022Q4

REPORT INFORMATION
  Report Type: Spontaneous
  Country: US (occurrence: None)
  Receive Date: 20221206
  Receipt Date: 20221206
  Transmission Date: 20230113
  Serious: Yes (Death)
  Sender: FDA-Public Use
  Company Number: None

PATIENT
  Age: 89 Year
  Sex: Female

DRUGS (7)
  1. TADALAFIL [Suspect]
     Active Substance: TADALAFIL
     Indication: Pulmonary arterial hypertension
     Dosage: 20 MG ORAL??TAKE 2 TABLETS BY MOUTH DAILY
     Route: 048
     Dates: start: 20181207
  2. ALLEGRA ALRG TAB [Concomitant]
  3. ASPIRIN CHW [Concomitant]
  4. MICARDIS TAB [Concomitant]
  5. NEXIUM CAP [Concomitant]
  6. PREDNISONE CON [Concomitant]
  7. SINGULAIR TAB [Concomitant]

REACTIONS (1)
  - Renal failure [None]

NARRATIVE: CASE EVENT DATE: 20221203
